FAERS Safety Report 25305000 (Version 2)
Quarter: 2025Q2

REPORT INFORMATION
  Report Type: Report from Study
  Country: FR (occurrence: FR)
  Receive Date: 20250513
  Receipt Date: 20250630
  Transmission Date: 20250716
  Serious: Yes (Other)
  Sender: UCB
  Company Number: FR-UCBSA-2025012307

PATIENT
  Sex: Male

DRUGS (6)
  1. BIMEKIZUMAB [Suspect]
     Active Substance: BIMEKIZUMAB
     Indication: Dermatitis
     Dosage: 320 MILLIGRAM, EV 4 WEEKS
     Route: 058
     Dates: start: 20241024, end: 20250207
  2. BIMEKIZUMAB [Suspect]
     Active Substance: BIMEKIZUMAB
     Indication: Off label use
     Dosage: 320 MILLIGRAM, EV 8 WEEKS
     Route: 058
  3. BIMEKIZUMAB [Suspect]
     Active Substance: BIMEKIZUMAB
     Indication: Dyshidrotic eczema
  4. METHOTREXATE [Concomitant]
     Active Substance: METHOTREXATE
     Indication: Spondylitis
     Dosage: 15 MILLIGRAM, WEEKLY (QW)
     Route: 058
     Dates: start: 2022
  5. ADALIMUMAB [Concomitant]
     Active Substance: ADALIMUMAB
     Indication: Spondylitis
     Dates: start: 2022
  6. HULIO [Concomitant]
     Active Substance: ADALIMUMAB-FKJP
     Indication: Spondylitis
     Dates: start: 202406, end: 202409

REACTIONS (4)
  - Dermatitis exfoliative generalised [Not Recovered/Not Resolved]
  - Upper respiratory tract infection [Recovered/Resolved]
  - Drug eruption [Not Recovered/Not Resolved]
  - Off label use [Unknown]

NARRATIVE: CASE EVENT DATE: 20241201
